FAERS Safety Report 6622084-2 (Version None)
Quarter: 2010Q1

REPORT INFORMATION
  Report Type: 
  Country: None (occurrence: None)
  Receive Date: 20100304
  Receipt Date: 20100222
  Transmission Date: 20100710
  Serious: Yes (Other)
  Sender: FDA-Public Use
  Company Number: 2010SP011365

PATIENT
  Sex: Female

DRUGS (5)
  1. REMERON [Suspect]
     Dosage: 45 MG; QD; PO
     Route: 048
  2. DEMEROL [Concomitant]
  3. OXYCONTIN [Concomitant]
  4. OXAZEPAM [Concomitant]
  5. TEMAZEPAM [Concomitant]

REACTIONS (7)
  - AGGRESSION [None]
  - AGITATION [None]
  - DIZZINESS [None]
  - HOSTILITY [None]
  - HYPOTENSION [None]
  - SUICIDE ATTEMPT [None]
  - VOMITING [None]
